FAERS Safety Report 7760810-X (Version None)
Quarter: 2011Q3

REPORT INFORMATION
  Report Type: 
  Country: None (occurrence: None)
  Receive Date: 20110919
  Receipt Date: 20110909
  Transmission Date: 20111222
  Serious: Yes (Hospitalization, Other)
  Sender: FDA-Public Use
  Company Number: US-ASTRAZENECA-2009UW03345

PATIENT
  Age: 62 Year
  Sex: Male

DRUGS (5)
  1. LISINOPRIL [Suspect]
     Route: 048
  2. TRAZODONE HCL [Concomitant]
  3. CRESTOR [Suspect]
     Route: 048
  4. ATACAND HCT [Suspect]
     Dosage: 16/12.5 MG
     Route: 048
  5. ATACAND [Suspect]
     Dosage: EVERY DAY
     Route: 048

REACTIONS (9)
  - CEREBROVASCULAR ACCIDENT [None]
  - BRONCHITIS [None]
  - DIZZINESS [None]
  - DRUG HYPERSENSITIVITY [None]
  - DRUG INEFFECTIVE [None]
  - BALANCE DISORDER [None]
  - INCORRECT DOSE ADMINISTERED [None]
  - MALAISE [None]
  - COUGH [None]
